FAERS Safety Report 24006730 (Version 2)
Quarter: 2024Q3

REPORT INFORMATION
  Report Type: Spontaneous
  Country: US (occurrence: US)
  Receive Date: 20240624
  Receipt Date: 20240704
  Transmission Date: 20241016
  Serious: No
  Sender: PFIZER
  Company Number: US-PFIZER INC-202400198241

PATIENT
  Age: 65 Year
  Sex: Female
  Weight: 58.957 kg

DRUGS (4)
  1. TUKYSA [Suspect]
     Active Substance: TUCATINIB
     Indication: Breast cancer metastatic
     Dosage: IT IS 2 TABLETS TWICE A DAY. 300 MILLIGRAMS
  2. CAPECITABINE [Suspect]
     Active Substance: CAPECITABINE
     Indication: Breast cancer metastatic
     Dosage: IT WAS 500 MILLIGRAMS THEY HAD ME UP TO 3 TABLETS 2 TIMES A DAY
  3. CAPECITABINE [Suspect]
     Active Substance: CAPECITABINE
     Dosage: THEY REDUCED IT DOWN TO THE CAPECITABINE 2 TABLETS SAME DOSAGE 500 MILLIGRAMS 2 TABLETS A DAY
  4. XELODA [Suspect]
     Active Substance: CAPECITABINE
     Dosage: UNK

REACTIONS (21)
  - Diarrhoea [Unknown]
  - Blood blister [Recovering/Resolving]
  - Wound [Unknown]
  - White blood cell count decreased [Unknown]
  - Red blood cell count [Unknown]
  - Haemoglobin decreased [Unknown]
  - Haematocrit decreased [Unknown]
  - Mean cell haemoglobin concentration [Unknown]
  - Platelet count decreased [Unknown]
  - Red cell distribution width increased [Unknown]
  - Monocyte count increased [Unknown]
  - Lymphocyte count decreased [Unknown]
  - Blood albumin decreased [Unknown]
  - Aspartate aminotransferase increased [Unknown]
  - Blood phosphorus increased [Unknown]
  - Blood sodium decreased [Unknown]
  - Albumin globulin ratio decreased [Unknown]
  - Carcinoembryonic antigen decreased [Unknown]
  - Carbohydrate antigen 15-3 increased [Unknown]
  - Mitral valve prolapse [Unknown]
  - Nausea [Unknown]
